FAERS Safety Report 6813264-1 (Version None)
Quarter: 2010Q2

REPORT INFORMATION
  Report Type: 
  Country: None (occurrence: None)
  Receive Date: 20100628
  Receipt Date: 20100609
  Transmission Date: 20101027
  Serious: Yes (Hospitalization)
  Sender: FDA-Public Use
  Company Number: 008773

PATIENT
  Age: 71 Year
  Sex: Female
  Weight: 94.8 kg

DRUGS (13)
  1. PEGAPTANIB SODIUM; PLACEBO (PEGAPTANIB SODIUM) UNKNOWN [Suspect]
     Indication: MACULAR DEGENERATION
     Dosage: 3 MG IN YEAR 1, INTRAOCULAR
     Route: 031
     Dates: start: 20030226
  2. LEVOTHYROXINE SODIUM [Concomitant]
  3. INDOMETHACIN [Concomitant]
  4. ASPIRIN [Concomitant]
  5. DIOVAN [Concomitant]
  6. ATENOLOL/HYDROCHLOROTHIAZIDE (HYDROCIILOROTHIAZIDE,ATENOLOL) [Concomitant]
  7. CLONIDINE HCL [Concomitant]
  8. TYLENOL PM (DIPIIENHYDRAMINE, PARACETAMOL) [Concomitant]
  9. IRON (IRON) [Concomitant]
  10. TYLENOL SINUS MEDICATION (PARACETAMOL, PSEUDOEPHEDRINE HYDROCHLORIDE) [Concomitant]
  11. CLOPIDOGREL BISULFATE [Concomitant]
  12. MULTIVITAMINS (ERGOCALCIFEROL,ASCORBIC ACID,FOLIC ACID, THIAMINE HYDRO [Concomitant]
  13. RABEPRAZOLE SODIUM [Concomitant]

REACTIONS (2)
  - ANGINA PECTORIS [None]
  - CORONARY ARTERY STENOSIS [None]
